APPROVED DRUG PRODUCT: NAPRELAN
Active Ingredient: NAPROXEN SODIUM
Strength: EQ 750MG BASE
Dosage Form/Route: TABLET, EXTENDED RELEASE;ORAL
Application: N020353 | Product #003 | TE Code: AB
Applicant: TWI PHARMACEUTICALS INC
Approved: Jan 5, 1996 | RLD: Yes | RS: Yes | Type: RX